FAERS Safety Report 5009138-1 (Version None)
Quarter: 2006Q2

REPORT INFORMATION
  Report Type: 
  Country: None (occurrence: None)
  Receive Date: 20060519
  Receipt Date: 20060515
  Transmission Date: 20061013
  Serious: Yes (Hospitalization)
  Sender: FDA-Public Use
  Company Number: US-2005-016544

PATIENT
  Age: 50 Year
  Sex: Female
  Weight: 65.8 kg

DRUGS (4)
  1. CLIMARA [Suspect]
     Indication: MENOPAUSE
     Dosage: 0.1 MG/D, CONT, TRANSDERMAL
     Route: 062
     Dates: start: 19950101, end: 20010201
  2. PREMARIN [Suspect]
     Indication: MENOPAUSE
     Dates: start: 19880101, end: 19930101
  3. KERLONE [Concomitant]
  4. LOZOL [Concomitant]

REACTIONS (11)
  - ANXIETY [None]
  - ARTHRALGIA [None]
  - BACK INJURY [None]
  - BREAST CANCER STAGE II [None]
  - DEPRESSION [None]
  - DISCOMFORT [None]
  - OESTROGEN RECEPTOR ASSAY POSITIVE [None]
  - OTITIS MEDIA [None]
  - RHEUMATOID ARTHRITIS [None]
  - URINARY TRACT INFECTION [None]
  - VAGINAL INFECTION [None]
